FAERS Safety Report 7701316-3 (Version None)
Quarter: 2011Q3

REPORT INFORMATION
  Report Type: 
  Country: None (occurrence: None)
  Receive Date: 20110822
  Receipt Date: 20110813
  Transmission Date: 20111222
  Serious: Yes (Other)
  Sender: FDA-Public Use
  Company Number: US-JNJFOC-20110808449

PATIENT
  Sex: Male
  Weight: 90.72 kg

DRUGS (2)
  1. DURAGESIC-100 [Suspect]
     Route: 062
  2. DURAGESIC-100 [Suspect]
     Indication: PAIN
     Route: 062

REACTIONS (7)
  - DEPRESSION [None]
  - MUSCLE SPASMS [None]
  - SPINAL FRACTURE [None]
  - BACK PAIN [None]
  - BREAKTHROUGH PAIN [None]
  - PAIN IN EXTREMITY [None]
  - MUSCULOSKELETAL PAIN [None]
